FAERS Safety Report 24634245 (Version 2)
Quarter: 2024Q4

REPORT INFORMATION
  Report Type: Spontaneous
  Country: CA (occurrence: CA)
  Receive Date: 20241119
  Receipt Date: 20241121
  Transmission Date: 20250115
  Serious: Yes (Other)
  Sender: INTERCEPT PHARMACEUTICALS
  Company Number: CA-ADVANZ PHARMA-202411009167

PATIENT
  Sex: Female

DRUGS (2)
  1. OCALIVA [Suspect]
     Active Substance: OBETICHOLIC ACID
     Indication: Primary biliary cholangitis
     Dosage: 5 MG, QD (OCALIVA)
     Route: 048
     Dates: start: 20210704
  2. URSODIOL [Concomitant]
     Active Substance: URSODIOL
     Dosage: 500 MG, BID

REACTIONS (3)
  - Cardiac failure congestive [Unknown]
  - Arrhythmia [Unknown]
  - Dyspnoea [Unknown]

NARRATIVE: CASE EVENT DATE: 20240101
